FAERS Safety Report 10213721 (Version 1)
Quarter: 2014Q2

REPORT INFORMATION
  Report Type: Spontaneous
  Country: TR (occurrence: TR)
  Receive Date: 20140603
  Receipt Date: 20140603
  Transmission Date: 20141212
  Serious: Yes (Hospitalization)
  Sender: FDA-Public Use
  Company Number: TR-MYLANLABS-2014S1012085

PATIENT
  Age: 53 Year
  Sex: Female

DRUGS (2)
  1. CLOZAPINE [Suspect]
     Indication: SCHIZOPHRENIA
     Dosage: 500 MG/D
     Route: 065
  2. ROSUVASTATIN [Concomitant]
     Indication: HYPERLIPIDAEMIA
     Dosage: 20 MG/D
     Route: 065

REACTIONS (3)
  - Toxicity to various agents [Recovered/Resolved]
  - Neuroleptic malignant syndrome [Recovered/Resolved]
  - Urinary incontinence [Unknown]
